FAERS Safety Report 22162994 (Version 1)
Quarter: 2023Q2

REPORT INFORMATION
  Report Type: Spontaneous
  Country: CN (occurrence: None)
  Receive Date: 20230401
  Receipt Date: 20230401
  Transmission Date: 20230722
  Serious: Yes (Other)
  Sender: FDA-Public Use
  Company Number: CN-ROCHE-3321966

PATIENT
  Sex: Female
  Weight: 64 kg

DRUGS (6)
  1. AVASTIN [Suspect]
     Active Substance: BEVACIZUMAB
     Indication: Endometrial cancer
     Route: 041
     Dates: start: 20230216
  2. AVASTIN [Suspect]
     Active Substance: BEVACIZUMAB
     Dosage: PACLITAXEL FOR INJECTION (ALBUMIN BOUND) + NEDAPLATIN + BEVACIZUMAB INJECTION
     Route: 065
  3. OXALIPLATIN [Suspect]
     Active Substance: OXALIPLATIN
     Indication: Endometrial cancer
     Route: 041
     Dates: start: 20230215
  4. PACLITAXEL [Suspect]
     Active Substance: PACLITAXEL
     Indication: Endometrial cancer
     Route: 041
     Dates: start: 20230215
  5. PACLITAXEL [Suspect]
     Active Substance: PACLITAXEL
     Dosage: PACLITAXEL FOR INJECTION (ALBUMIN BOUND) + NEDAPLATIN + BEVACIZUMAB INJECTION
     Route: 065
  6. NEDAPLATIN [Suspect]
     Active Substance: NEDAPLATIN
     Indication: Endometrial cancer
     Dosage: PACLITAXEL FOR INJECTION (ALBUMIN BOUND) + NEDAPLATIN + BEVACIZUMAB INJECTION
     Route: 065

REACTIONS (3)
  - Platelet count decreased [Recovering/Resolving]
  - Myelosuppression [Unknown]
  - Intentional product use issue [Unknown]

NARRATIVE: CASE EVENT DATE: 20230324
